FAERS Safety Report 10225148 (Version 1)
Quarter: 2014Q2

REPORT INFORMATION
  Report Type: Spontaneous
  Country: US (occurrence: US)
  Receive Date: 20140609
  Receipt Date: 20140609
  Transmission Date: 20141212
  Serious: No
  Sender: FDA-Public Use
  Company Number: US-BAYER-2014-083772

PATIENT
  Age: 56 Year
  Sex: Male
  Weight: 117.91 kg

DRUGS (3)
  1. ALEVE LIQUID GELS [Suspect]
     Indication: MYALGIA
     Dosage: 2 DF, PRN
     Route: 048
  2. ALEVE CAPLET [Suspect]
     Indication: MYALGIA
     Dosage: 2 DF, PRN
     Route: 048
  3. BAYER ASPIRIN REGIMEN ADULT LOW STRENGTH [Concomitant]
     Dosage: UNK

REACTIONS (2)
  - Intentional product misuse [None]
  - Intentional product misuse [None]
